FAERS Safety Report 11778784 (Version 1)
Quarter: 2015Q4

REPORT INFORMATION
  Report Type: Report from Study
  Country: GB (occurrence: GB)
  Receive Date: 20151125
  Receipt Date: 20151125
  Transmission Date: 20160304
  Serious: Yes (Other)
  Sender: FDA-Public Use
  Company Number: GB-ABBVIE-15K-167-1505350-00

PATIENT
  Age: 21 Year
  Sex: Female

DRUGS (1)
  1. HUMIRA [Suspect]
     Active Substance: ADALIMUMAB
     Indication: PRODUCT USED FOR UNKNOWN INDICATION
     Route: 058
     Dates: start: 20151118, end: 20151118

REACTIONS (10)
  - Pallor [Recovering/Resolving]
  - Muscle rigidity [Recovering/Resolving]
  - Body temperature decreased [Recovering/Resolving]
  - Seizure [Recovering/Resolving]
  - Syncope [Recovering/Resolving]
  - Malaise [Recovering/Resolving]
  - Eye movement disorder [Recovering/Resolving]
  - Cyanosis [Recovered/Resolved]
  - Dizziness [Recovering/Resolving]
  - Cold sweat [Recovering/Resolving]

NARRATIVE: CASE EVENT DATE: 20151118
